FAERS Safety Report 4529356-6 (Version None)
Quarter: 2004Q4

REPORT INFORMATION
  Report Type: 
  Country: None (occurrence: None)
  Receive Date: 20041214
  Receipt Date: 20041130
  Transmission Date: 20050328
  Serious: Yes (Other)
  Sender: FDA-Public Use
  Company Number: FABR-10436

PATIENT
  Age: 33 Year
  Sex: Male
  Weight: 48 kg

DRUGS (11)
  1. FABRAZYME [Suspect]
     Indication: FABRY'S DISEASE
     Dosage: 0.5 MG/KG IV
     Route: 042
     Dates: start: 19991124
  2. FABRAZYME [Suspect]
     Indication: FABRY'S DISEASE
     Dosage: 0.5 MG/KG IV
     Route: 042
     Dates: start: 20040115
  3. FABRAZYME [Suspect]
     Indication: FABRY'S DISEASE
     Dosage: 1 MG IV
     Route: 042
     Dates: start: 20040205
  4. TEGRETOL [Concomitant]
  5. TRIATEC [Concomitant]
  6. KENZEN [Concomitant]
  7. LOPERAMIDE HCL [Concomitant]
  8. OROKEN [Concomitant]
  9. NITROGLYCERIN [Concomitant]
  10. ZYRTEC [Concomitant]
  11. PRIMPERAN [Concomitant]

REACTIONS (7)
  - FACE OEDEMA [None]
  - NAUSEA [None]
  - PRURITUS [None]
  - RASH [None]
  - SKIN TEST POSITIVE [None]
  - URTICARIA [None]
  - VOMITING [None]
